FAERS Safety Report 8886924 (Version 1)
Quarter: 2012Q4

REPORT INFORMATION
  Report Type: 
  Country: AT (occurrence: AT)
  Receive Date: 20121105
  Receipt Date: 20121105
  Transmission Date: 20130627
  Serious: Yes (Other)
  Sender: FDA-Public Use
  Company Number: AT-PFIZER INC-2012272394

PATIENT
  Age: 49 Year
  Sex: Male

DRUGS (5)
  1. AXITINIB [Suspect]
     Indication: METASTATIC RENAL CELL CARCINOMA
     Dosage: 5 mg, 2x/day
     Dates: start: 20120823, end: 20121009
  2. AXITINIB [Suspect]
     Dosage: 7 mg, 2x/day
     Dates: start: 20121010
  3. PANTOPRAZOL [Concomitant]
     Indication: PROPHYLAXIS AGAINST GASTROINTESTINAL ULCER
     Dosage: 40 mg, UNK
     Dates: start: 201207
  4. ACEMIN [Concomitant]
     Indication: HYPERTONIA
     Dosage: 10 mg, UNK
     Dates: start: 20121025
  5. ACECOMB [Concomitant]
     Indication: HYPERTONIA
     Dosage: UNK
     Dates: start: 20121025

REACTIONS (1)
  - Hypertriglyceridaemia [Not Recovered/Not Resolved]
